FAERS Safety Report 6393894-4 (Version None)
Quarter: 2009Q4

REPORT INFORMATION
  Report Type: 
  Country: None (occurrence: None)
  Receive Date: 20091008
  Receipt Date: 20090925
  Transmission Date: 20100525
  Serious: Yes (Other)
  Sender: FDA-Public Use
  Company Number: JP-PFIZER INC-2009267676

PATIENT
  Age: 89 Year

DRUGS (9)
  1. ADRIACIN [Suspect]
     Indication: LYMPHOMA
     Dosage: 50 MG, INJECTION, UNK
     Dates: start: 20070101
  2. ADRIACIN [Suspect]
     Dosage: 50 MG, UNK, INJECTION
     Dates: start: 20070101
  3. RITUXAN [Suspect]
     Indication: LYMPHOMA
     Dosage: 200 MG /DAY, INJECTION
     Dates: start: 20070101
  4. ENDOXAN [Suspect]
     Indication: LYMPHOMA
     Dosage: 750 MG/DAY, INJECTION
     Dates: start: 20070101
  5. ENDOXAN [Suspect]
     Dosage: 750 MG/DAY, INJECTION
  6. ONCOVIN [Suspect]
     Indication: LYMPHOMA
     Dosage: 1.4 MG/DAY, INJECTION
     Dates: start: 20070101
  7. ONCOVIN [Suspect]
     Dosage: 1.4 MG/DAY, INJECTION
  8. PREDONINE [Suspect]
     Indication: LYMPHOMA
     Dosage: 30 MG/DAY
     Route: 048
     Dates: start: 20070101
  9. PREDONINE [Suspect]
     Dosage: 30 MG, UNK
     Route: 048
     Dates: start: 20070101

REACTIONS (1)
  - INTERSTITIAL LUNG DISEASE [None]
